FAERS Safety Report 4327896-6 (Version None)
Quarter: 2004Q1

REPORT INFORMATION
  Report Type: 
  Country: None (occurrence: None)
  Receive Date: 20040331
  Receipt Date: 20040322
  Transmission Date: 20041129
  Serious: Yes (Hospitalization)
  Sender: FDA-Public Use
  Company Number: US-BRISTOL-MYERS SQUIBB COMPANY-12538260

PATIENT
  Age: 43 Year
  Sex: Male
  Weight: 82 kg

DRUGS (9)
  1. PACLITAXEL [Suspect]
     Indication: LARYNGEAL CANCER
     Dosage: CYCLE 1 RECEIVED 6 DOSES AND CYCLE 2 RECEIVED 4 DOSES
     Route: 042
     Dates: start: 20040303, end: 20040303
  2. CARBOPLATIN [Suspect]
     Indication: LARYNGEAL CANCER
     Dosage: CYCLE 1 RECEIVED 6 DOSES AND CYCLE 2 RECEIVED 4 DOSES
     Route: 042
     Dates: start: 20040303, end: 20040303
  3. PREDNISONE [Concomitant]
  4. DEPAKOTE [Concomitant]
  5. PROTONIX [Concomitant]
  6. LUVOX [Concomitant]
  7. VICODIN [Concomitant]
  8. AMBIEN [Concomitant]
  9. TRAZODONE HCL [Concomitant]

REACTIONS (2)
  - DEPRESSION [None]
  - SUICIDE ATTEMPT [None]
